FAERS Safety Report 14813128 (Version 1)
Quarter: 2018Q2

REPORT INFORMATION
  Report Type: Spontaneous
  Country: US (occurrence: US)
  Receive Date: 20180426
  Receipt Date: 20180426
  Transmission Date: 20180711
  Serious: No
  Sender: FDA-Public Use
  Company Number: US-MALLINCKRODT-T201703550

PATIENT
  Age: 43 Year
  Sex: Male

DRUGS (1)
  1. DEXTROAMPHETAMINE SULFATE. [Suspect]
     Active Substance: DEXTROAMPHETAMINE SULFATE
     Indication: ATTENTION DEFICIT/HYPERACTIVITY DISORDER
     Dosage: 20 MG, TWO TIMES A DAY
     Route: 048
     Dates: end: 20170821

REACTIONS (6)
  - Malaise [Unknown]
  - Headache [Unknown]
  - Pain [Unknown]
  - Disorientation [Unknown]
  - Influenza like illness [Unknown]
  - Product physical issue [Unknown]
